FAERS Safety Report 5746297-7 (Version None)
Quarter: 2008Q2

REPORT INFORMATION
  Report Type: 
  Country: None (occurrence: None)
  Receive Date: 20080520
  Receipt Date: 20080505
  Transmission Date: 20081010
  Serious: Yes (Hospitalization)
  Sender: FDA-Public Use
  Company Number: 2008BI011836

PATIENT
  Age: 51 Year
  Sex: Female

DRUGS (4)
  1. AVONEX [Suspect]
     Indication: RELAPSING-REMITTING MULTIPLE SCLEROSIS
     Dosage: 30 UG; QW; IM
     Route: 030
     Dates: start: 20020101
  2. LEVOTHYROXINE SODIUM [Concomitant]
  3. LYSANXIA [Concomitant]
  4. IMOVANE [Concomitant]

REACTIONS (3)
  - BRONCHIAL DISORDER [None]
  - HAEMOPTYSIS [None]
  - THROMBOSIS [None]
